FAERS Safety Report 12140960 (Version 4)
Quarter: 2016Q2

REPORT INFORMATION
  Report Type: Report from Study
  Country: US (occurrence: US)
  Receive Date: 20160303
  Receipt Date: 20160406
  Transmission Date: 20160815
  Serious: Yes (Hospitalization, Other)
  Sender: FDA-Public Use
  Company Number: US-GILEAD-2016-0201342

PATIENT
  Age: 73 Year
  Sex: Female

DRUGS (3)
  1. REMODULIN [Concomitant]
     Active Substance: TREPROSTINIL
  2. AMBRISENTAN [Suspect]
     Active Substance: AMBRISENTAN
     Indication: PRODUCT USED FOR UNKNOWN INDICATION
     Dosage: 10 MG, QD
     Route: 065
     Dates: start: 20140617
  3. ADCIRCA [Concomitant]
     Active Substance: TADALAFIL

REACTIONS (10)
  - Dizziness [Unknown]
  - Abdominal tenderness [Unknown]
  - Cerebrovascular accident [Unknown]
  - Fluid retention [Not Recovered/Not Resolved]
  - Eye disorder [Unknown]
  - Musculoskeletal discomfort [Unknown]
  - Fluid overload [Unknown]
  - Depression [Unknown]
  - Blindness unilateral [Unknown]
  - Unevaluable event [Unknown]

NARRATIVE: CASE EVENT DATE: 201508
